FAERS Safety Report 8768050 (Version 1)
Quarter: 2012Q4

REPORT INFORMATION
  Report Type: 
  Country: CA (occurrence: CA)
  Receive Date: 20120829
  Receipt Date: 20120829
  Transmission Date: 20130627
  Serious: Yes (Hospitalization)
  Sender: FDA-Public Use
  Company Number: CA-ELI_LILLY_AND_COMPANY-CA201208007543

PATIENT
  Age: 84 Year
  Sex: Female

DRUGS (12)
  1. FORTEO [Suspect]
     Indication: OSTEOPOROSIS
     Dosage: 20 ug, qd
     Route: 058
     Dates: start: 20120225
  2. EPREX [Concomitant]
     Dosage: UNK, weekly (1/W)
     Route: 065
  3. CALCIUM [Concomitant]
     Dosage: UNK, unknown
     Route: 065
  4. VITAMIN D [Concomitant]
     Dosage: UNK, unknown
     Route: 065
  5. MAGNESIUM [Concomitant]
     Dosage: UNK, unknown
     Route: 065
  6. ATASOL                             /00020001/ [Concomitant]
     Dosage: UNK, unknown
     Route: 065
  7. LIPITOR [Concomitant]
     Dosage: UNK, unknown
     Route: 065
  8. SYNTHROID [Concomitant]
     Dosage: UNK, unknown
     Route: 065
  9. PANTOLOC                           /01263204/ [Concomitant]
     Dosage: UNK, unknown
     Route: 065
  10. VITAMIN B12 [Concomitant]
     Dosage: UNK, unknown
     Route: 065
  11. VITAMIN B6 [Concomitant]
     Dosage: UNK, unknown
     Route: 065
  12. CELEBREX [Concomitant]
     Dosage: UNK, prn
     Route: 065

REACTIONS (2)
  - Abdominal pain upper [Not Recovered/Not Resolved]
  - Pain [Not Recovered/Not Resolved]
